FAERS Safety Report 8726914 (Version 2)
Quarter: 2015Q2

REPORT INFORMATION
  Report Type: Report from Study
  Country: US (occurrence: US)
  Receive Date: 20120816
  Receipt Date: 20150626
  Transmission Date: 20150821
  Serious: Yes (Hospitalization)
  Sender: FDA-Public Use
  Company Number: US-ROCHE-1100618

PATIENT
  Age: 44 Year
  Sex: Female

DRUGS (1)
  1. ACTIVASE [Suspect]
     Active Substance: ALTEPLASE
     Indication: ACUTE MYOCARDIAL INFARCTION
     Route: 042

REACTIONS (6)
  - Arrhythmia [Unknown]
  - Rales [Unknown]
  - Chest pain [Unknown]
  - Bundle branch block [Unknown]
  - Blood creatine phosphokinase increased [Unknown]
  - Blood pressure increased [Recovered/Resolved]
